FAERS Safety Report 6818529-5 (Version None)
Quarter: 2010Q3

REPORT INFORMATION
  Report Type: 
  Country: None (occurrence: None)
  Receive Date: 20100706
  Receipt Date: 20100621
  Transmission Date: 20110219
  Serious: Yes (Other)
  Sender: FDA-Public Use
  Company Number: US-SANOFI-AVENTIS-2010SA035865

PATIENT
  Age: 68 Year
  Sex: Female

DRUGS (4)
  1. OPTICLICK [Suspect]
     Indication: TYPE 2 DIABETES MELLITUS
  2. LANTUS [Suspect]
     Indication: TYPE 2 DIABETES MELLITUS
     Dosage: DOSE:50 UNIT(S)
     Route: 058
  3. NOVOLOG [Concomitant]
     Dosage: PER SLIDING SCALE WITH MEALS
  4. ANTIHYPERTENSIVES [Concomitant]

REACTIONS (7)
  - ARTHRITIS [None]
  - ARTHROPATHY [None]
  - BLOOD GLUCOSE INCREASED [None]
  - GAIT DISTURBANCE [None]
  - HIP ARTHROPLASTY [None]
  - MEDICATION ERROR [None]
  - VISUAL ACUITY REDUCED [None]
